FAERS Safety Report 21203987 (Version 1)
Quarter: 2022Q3

REPORT INFORMATION
  Report Type: Spontaneous
  Country: CZ (occurrence: CZ)
  Receive Date: 20220811
  Receipt Date: 20220811
  Transmission Date: 20221026
  Serious: Yes (Other)
  Sender: FDA-Public Use
  Company Number: CZ-AMGEN-CZESP2022134261

PATIENT
  Age: 39 Year
  Sex: Female

DRUGS (9)
  1. XGEVA [Suspect]
     Active Substance: DENOSUMAB
     Indication: Metastases to bone
     Dosage: 120 MILLIGRAM, Q4WK
     Route: 065
  2. LETROZOLE [Concomitant]
     Active Substance: LETROZOLE
     Indication: Breast cancer
     Dosage: 2.5 MILLIGRAM, QD
  3. LETROZOLE [Concomitant]
     Active Substance: LETROZOLE
     Indication: Metastases to bone
  4. RIBOCICLIB [Concomitant]
     Active Substance: RIBOCICLIB
     Indication: Breast cancer
     Dosage: 600 MILLIGRAM, CYCLICAL, FOR 21 DAYS
  5. RIBOCICLIB [Concomitant]
     Active Substance: RIBOCICLIB
     Indication: Metastases to bone
  6. GOSERELIN [Concomitant]
     Active Substance: GOSERELIN
     Indication: Breast cancer
     Dosage: 3.6 MILLIGRAM
  7. GOSERELIN [Concomitant]
     Active Substance: GOSERELIN
     Indication: Metastases to bone
  8. CALCIUM [Concomitant]
     Active Substance: CALCIUM
  9. VITAMIN D [Concomitant]
     Active Substance: VITAMIN D NOS

REACTIONS (3)
  - Neutropenia [Unknown]
  - Transaminases increased [Unknown]
  - Toxicity to various agents [Unknown]
